FAERS Safety Report 13841236 (Version 12)
Quarter: 2020Q1

REPORT INFORMATION
  Report Type: Spontaneous
  Country: FR (occurrence: FR)
  Receive Date: 20170807
  Receipt Date: 20200121
  Transmission Date: 20200409
  Serious: Yes (Other)
  Sender: FDA-Public Use
  Company Number: FR-009507513-1708FRA002801

PATIENT
  Age: 30 Year
  Sex: Female
  Weight: 57 kg

DRUGS (1)
  1. NEXPLANON [Suspect]
     Active Substance: ETONOGESTREL
     Indication: CONTRACEPTION
     Dosage: 1 IMPLANT, IN THE INTERNAL FACE OF THE LEFT ARM, IN THE GROOVE BETWEEN THE BICEPS AND TRICEPS
     Route: 059
     Dates: start: 20170202

REACTIONS (18)
  - Device embolisation [Recovered/Resolved with Sequelae]
  - Menorrhagia [Unknown]
  - Device deployment issue [Recovered/Resolved with Sequelae]
  - Surgery [Recovered/Resolved with Sequelae]
  - Metrorrhagia [Unknown]
  - Fatigue [Unknown]
  - Pain [Unknown]
  - Thoracotomy [Unknown]
  - Depression [Not Recovered/Not Resolved]
  - Scar [Unknown]
  - Complication associated with device [Recovered/Resolved]
  - Breast pain [Unknown]
  - Wrong technique in product usage process [Unknown]
  - Nerve injury [Unknown]
  - Anaemia [Unknown]
  - Movement disorder [Recovered/Resolved]
  - Complication of device removal [Recovered/Resolved with Sequelae]
  - Complication of device removal [Recovered/Resolved with Sequelae]

NARRATIVE: CASE EVENT DATE: 2017
